FAERS Safety Report 19783801 (Version 1)
Quarter: 2021Q3

REPORT INFORMATION
  Report Type: Spontaneous
  Country: GB (occurrence: GB)
  Receive Date: 20210903
  Receipt Date: 20210903
  Transmission Date: 20211014
  Serious: Yes (Other)
  Sender: FDA-Public Use
  Company Number: GB-SUN PHARMACEUTICAL INDUSTRIES LTD-2021RR-309910

PATIENT
  Age: 25 Year
  Sex: Male

DRUGS (10)
  1. CELECOXIB. [Suspect]
     Active Substance: CELECOXIB
     Indication: PAIN
     Dosage: UNK
     Route: 065
     Dates: start: 2003
  2. DICLOFENAC [Suspect]
     Active Substance: DICLOFENAC
     Indication: PAIN
     Dosage: UNK
     Route: 065
     Dates: start: 2001
  3. PARACETAMOL [Suspect]
     Active Substance: ACETAMINOPHEN
     Indication: PAIN
     Dosage: UNK
     Route: 065
  4. MEPTAZINOL [Concomitant]
     Active Substance: MEPTAZINOL HYDROCHLORIDE
     Indication: PAIN
     Dosage: UNK
     Route: 065
  5. NEFOPAM [Concomitant]
     Active Substance: NEFOPAM
     Indication: PAIN
     Dosage: UNK
     Route: 065
  6. GABAPENTIN. [Suspect]
     Active Substance: GABAPENTIN
     Indication: PAIN
     Dosage: UNK
     Route: 065
  7. TRAMADOL. [Suspect]
     Active Substance: TRAMADOL
     Indication: PAIN
     Dosage: UNK
     Route: 065
  8. CO?DYDRAMOL [Concomitant]
     Active Substance: ACETAMINOPHEN\DIHYDROCODEINE
     Indication: PAIN
     Dosage: UNK
     Route: 065
     Dates: start: 2003
  9. CODEINE [Suspect]
     Active Substance: CODEINE
     Indication: PAIN
     Dosage: UNK
     Route: 065
     Dates: start: 2001
  10. DICLOFENAC [Suspect]
     Active Substance: DICLOFENAC
     Dosage: UNK
     Route: 065
     Dates: start: 2003

REACTIONS (6)
  - Nausea [Unknown]
  - Pain [Unknown]
  - Withdrawal syndrome [Unknown]
  - Treatment noncompliance [Unknown]
  - Drug ineffective [Unknown]
  - Hyperhidrosis [Unknown]
